FAERS Safety Report 7526700-2 (Version None)
Quarter: 2011Q2

REPORT INFORMATION
  Report Type: 
  Country: None (occurrence: None)
  Receive Date: 20110606
  Receipt Date: 20110531
  Transmission Date: 20111010
  Serious: Yes (Hospitalization, Other)
  Sender: FDA-Public Use
  Company Number: US-ELI_LILLY_AND_COMPANY-US201006005977

PATIENT
  Sex: Female
  Weight: 111.11 kg

DRUGS (19)
  1. HUMALOG [Concomitant]
     Indication: DIABETES MELLITUS
     Dosage: 40 U, EACH MORNING
     Dates: start: 20050101
  2. NAPROXEN [Concomitant]
     Dosage: 500 MG, BID
  3. GLUCOPHAGE [Concomitant]
     Indication: DIABETES MELLITUS
     Dosage: 1000 MG, BID
     Dates: start: 20050101
  4. CHROMAGEN [Concomitant]
     Indication: IRON DEFICIENCY ANAEMIA
     Dosage: 1 DF, QD
     Dates: start: 20070614, end: 20081230
  5. HUMALOG [Concomitant]
     Dosage: 30 U, EACH EVENING
  6. NORVASC [Concomitant]
     Indication: HYPERTENSION
     Dosage: 10 MG, QD
     Dates: start: 20000101
  7. INDAPAMIDE [Concomitant]
     Indication: HYPERTENSION
     Dosage: UNK
     Dates: start: 20080407
  8. NEXIUM [Concomitant]
     Indication: GASTROOESOPHAGEAL REFLUX DISEASE
     Dosage: UNK, PRN
     Dates: start: 20060101, end: 20090101
  9. NAFTIN [Concomitant]
     Indication: ECZEMA
     Dosage: UNK
     Dates: start: 20080328, end: 20090122
  10. LOTENSIN [Concomitant]
     Dosage: 20 MG, QD
  11. SYNTHROID [Concomitant]
     Dosage: 20 UG, QD
  12. ASPIRIN [Concomitant]
     Dosage: 81 MG, QD
  13. ALBUTEROL [Concomitant]
     Indication: WHEEZING
  14. BYETTA [Suspect]
     Dosage: 5 UG, BID
     Dates: start: 20051218, end: 20080401
  15. VYTORIN [Concomitant]
     Indication: HYPERCHOLESTEROLAEMIA
     Dosage: 1 DF, QD
     Dates: start: 20070401, end: 20080701
  16. VOLTAREN [Concomitant]
     Indication: PAIN
     Dosage: 75 MG, BID
     Dates: start: 20040101
  17. SINGULAIR [Concomitant]
     Dosage: 10 MG, QD
  18. ADVAIR DISKUS 100/50 [Concomitant]
  19. HYZAAR [Concomitant]
     Dosage: 1 DF, QD

REACTIONS (2)
  - PANCREATITIS ACUTE [None]
  - OFF LABEL USE [None]
